FAERS Safety Report 6283564-5 (Version None)
Quarter: 2009Q3

REPORT INFORMATION
  Report Type: 
  Country: None (occurrence: None)
  Receive Date: 20090724
  Receipt Date: 20090720
  Transmission Date: 20100115
  Serious: Yes (Death)
  Sender: FDA-Public Use
  Company Number: US-GENENTECH-287222

PATIENT
  Sex: Male

DRUGS (9)
  1. XOLAIR [Suspect]
     Indication: ASTHMA
     Dosage: 30 MG, 1/MONTH
     Route: 058
  2. NASONEX [Concomitant]
     Indication: DRUG USE FOR UNKNOWN INDICATION
     Dosage: UNK
  3. ASTEPRO [Concomitant]
     Indication: DRUG USE FOR UNKNOWN INDICATION
  4. THEOPHYLLINE [Concomitant]
     Indication: DRUG USE FOR UNKNOWN INDICATION
  5. SYMBICORT [Concomitant]
     Indication: DRUG USE FOR UNKNOWN INDICATION
  6. ACCOLATE [Concomitant]
     Indication: DRUG USE FOR UNKNOWN INDICATION
  7. MAXAIR [Concomitant]
     Indication: DRUG USE FOR UNKNOWN INDICATION
  8. ATROVENT [Concomitant]
     Indication: DRUG USE FOR UNKNOWN INDICATION
  9. ALVESCO [Concomitant]
     Indication: DRUG USE FOR UNKNOWN INDICATION

REACTIONS (1)
  - MYOCARDIAL INFARCTION [None]
